FAERS Safety Report 11462445 (Version 1)
Quarter: 2015Q3

REPORT INFORMATION
  Report Type: Spontaneous
  Country: US (occurrence: US)
  Receive Date: 20150831
  Receipt Date: 20150831
  Transmission Date: 20151125
  Serious: No
  Sender: FDA-Public Use
  Company Number: US-ELI_LILLY_AND_COMPANY-US201011004091

PATIENT
  Age: 33 Year
  Sex: Female

DRUGS (3)
  1. IRON [Concomitant]
     Active Substance: IRON
  2. CYMBALTA [Suspect]
     Active Substance: DULOXETINE HYDROCHLORIDE
     Indication: DEPRESSION
     Dosage: 60 MG, DAILY (1/D)
  3. PRENATAL VITAMINS [Concomitant]
     Active Substance: VITAMINS

REACTIONS (9)
  - Abnormal labour [Recovered/Resolved]
  - Irritability [Not Recovered/Not Resolved]
  - Aggression [Not Recovered/Not Resolved]
  - Drug effect decreased [Not Recovered/Not Resolved]
  - Exposure during breast feeding [Recovered/Resolved]
  - Postpartum depression [Not Recovered/Not Resolved]
  - Crying [Not Recovered/Not Resolved]
  - Exposure during pregnancy [Recovered/Resolved]
  - Mood swings [Not Recovered/Not Resolved]

NARRATIVE: CASE EVENT DATE: 20100923
